FAERS Safety Report 8358598-7 (Version None)
Quarter: 2012Q2

REPORT INFORMATION
  Report Type: 
  Country: None (occurrence: None)
  Receive Date: 20120514
  Receipt Date: 20120507
  Transmission Date: 20120825
  Serious: Yes (Disabling)
  Sender: FDA-Public Use
  Company Number: ZA-B.I. PHARMACEUTICALS,INC./RIDGEFIELD-2012-AP-00333ZA

PATIENT
  Age: 80 Year
  Sex: Female

DRUGS (8)
  1. TREPALINE [Concomitant]
  2. PREMARIN [Concomitant]
  3. COXFLAM [Concomitant]
  4. LYRICA [Concomitant]
  5. PRADAXA [Suspect]
     Indication: KNEE ARTHROPLASTY
     Dosage: 150 MG
  6. TRAMADOL HYDROCHLORIDE/ACETAMINOPHEN [Concomitant]
  7. SIVATATIN [Concomitant]
  8. BILOCOR [Concomitant]

REACTIONS (2)
  - OEDEMA PERIPHERAL [None]
  - HAEMORRHAGE [None]
